FAERS Safety Report 10033965 (Version 1)
Quarter: 2014Q1

REPORT INFORMATION
  Report Type: Spontaneous
  Country: US (occurrence: None)
  Receive Date: 20140324
  Receipt Date: 20140324
  Transmission Date: 20141002
  Serious: Yes (Hospitalization)
  Sender: FDA-Public Use
  Company Number: None

PATIENT
  Age: 50 Year
  Sex: Male
  Weight: 86.18 kg

DRUGS (2)
  1. DEPAKOTE [Suspect]
     Indication: BIPOLAR I DISORDER
     Dosage: 2 PILLS ONCE DAILY
     Route: 048
  2. DEPAKOTE [Suspect]
     Indication: MAJOR DEPRESSION
     Dosage: 2 PILLS ONCE DAILY
     Route: 048

REACTIONS (4)
  - Depression [None]
  - Mood altered [None]
  - Drug level below therapeutic [None]
  - Product counterfeit [None]
